FAERS Safety Report 5679931-0 (Version None)
Quarter: 2008Q1

REPORT INFORMATION
  Report Type: 
  Country: None (occurrence: None)
  Receive Date: 20080324
  Receipt Date: 20080306
  Transmission Date: 20080703
  Serious: Yes (Other)
  Sender: FDA-Public Use
  Company Number: 8030812

PATIENT
  Age: 38 Year
  Sex: Female

DRUGS (5)
  1. FUROSEMIDE [Suspect]
     Dosage: 80 MG 2/D
  2. SALBUTAMOL [Suspect]
     Indication: ASTHMA
     Dosage: INH
     Route: 055
  3. PREDNISOLONE [Suspect]
     Indication: ASTHMA
  4. ASPIRIN [Suspect]
  5. ENOXAPARIN SODIUM [Suspect]

REACTIONS (17)
  - ANXIETY [None]
  - BLOOD PRESSURE DECREASED [None]
  - BUNDLE BRANCH BLOCK [None]
  - CAESAREAN SECTION [None]
  - CARDIOMEGALY [None]
  - COUGH [None]
  - DILATATION VENTRICULAR [None]
  - DRUG EXPOSURE DURING PREGNANCY [None]
  - DYSKINESIA [None]
  - EJECTION FRACTION DECREASED [None]
  - EMOTIONAL DISTRESS [None]
  - INTRACARDIAC THROMBUS [None]
  - MITRAL VALVE INCOMPETENCE [None]
  - OEDEMA PERIPHERAL [None]
  - PERIPARTUM CARDIOMYOPATHY [None]
  - TACHYCARDIA [None]
  - TRICUSPID VALVE INCOMPETENCE [None]
